FAERS Safety Report 8095644-2 (Version None)
Quarter: 2012Q1

REPORT INFORMATION
  Report Type: 
  Country: None (occurrence: None)
  Receive Date: 20120129
  Receipt Date: 20111227
  Transmission Date: 20120608
  Serious: No
  Sender: FDA-Public Use
  Company Number: US-ABBOTT-11P-163-0887343-00

PATIENT
  Age: 50 Year
  Sex: Female

DRUGS (13)
  1. HUMIRA [Suspect]
     Indication: RHEUMATOID ARTHRITIS
     Dates: start: 20111018
  2. MULTI-VITAMIN [Concomitant]
     Indication: ROUTINE HEALTH MAINTENANCE
     Dosage: DAILY
  3. FOLIC ACID [Concomitant]
     Indication: ROUTINE HEALTH MAINTENANCE
     Route: 048
  4. STOOL SOFTNER [Concomitant]
     Indication: BOWEL MOVEMENT IRREGULARITY
  5. HYDROXYCHLOROQUINE SULFATE [Concomitant]
     Indication: ARTHRITIS
  6. VITAMIN D [Concomitant]
     Indication: ROUTINE HEALTH MAINTENANCE
  7. VITAMIN B COMPLEX CAP [Concomitant]
     Indication: ROUTINE HEALTH MAINTENANCE
     Dosage: DAILY
  8. PREDNISONE TAB [Concomitant]
     Indication: ARTHRITIS
     Route: 048
  9. METHOTREXATE [Concomitant]
     Indication: ARTHRITIS
  10. FISH OIL [Concomitant]
     Indication: ROUTINE HEALTH MAINTENANCE
  11. FIBER [Concomitant]
     Indication: BOWEL MOVEMENT IRREGULARITY
  12. FLAX SEED OIL [Concomitant]
     Indication: ROUTINE HEALTH MAINTENANCE
  13. VIT C [Concomitant]
     Indication: ROUTINE HEALTH MAINTENANCE

REACTIONS (1)
  - INJECTION SITE PAIN [None]
